FAERS Safety Report 14388517 (Version 1)
Quarter: 2018Q1

REPORT INFORMATION
  Report Type: Spontaneous
  Country: US (occurrence: US)
  Receive Date: 20180115
  Receipt Date: 20180115
  Transmission Date: 20180509
  Serious: No
  Sender: FDA-Public Use
  Company Number: US-009507513-1712USA014382

PATIENT
  Age: 31 Year
  Sex: Female
  Weight: 77.1 kg

DRUGS (2)
  1. NUVARING [Suspect]
     Active Substance: ETHINYL ESTRADIOL\ETONOGESTREL
     Indication: CONTRACEPTION
     Dosage: CONTINUOUSLY IN A 4 WEEK CYCLE TO MISS HER MENSTRUAL CYCLE SOMETIMES
     Route: 067
     Dates: start: 2016
  2. NUVARING [Suspect]
     Active Substance: ETHINYL ESTRADIOL\ETONOGESTREL
     Indication: MENSTRUAL CYCLE MANAGEMENT
     Dosage: ALSO SOMETIMES 3 WEEKS INSIDE THEN 1 WEEK BREAK
     Route: 067
     Dates: start: 2016

REACTIONS (4)
  - Incorrect drug administration duration [Unknown]
  - Inappropriate schedule of drug administration [Unknown]
  - Product use in unapproved indication [Unknown]
  - Device expulsion [Unknown]

NARRATIVE: CASE EVENT DATE: 20171227
